FAERS Safety Report 13820444 (Version 1)
Quarter: 2017Q3

REPORT INFORMATION
  Report Type: Spontaneous
  Country: US (occurrence: US)
  Receive Date: 20170801
  Receipt Date: 20170801
  Transmission Date: 20171127
  Serious: Yes (Other)
  Sender: FDA-Public Use
  Company Number: US-LANNETT COMPANY, INC.-US-2017LAN000949

PATIENT
  Age: 65 Year
  Sex: Female
  Weight: 67.12 kg

DRUGS (7)
  1. TEMAZEPAM. [Concomitant]
     Active Substance: TEMAZEPAM
     Indication: SLEEP DISORDER
     Dosage: UNK
     Route: 065
  2. ALPRAZOLAM. [Concomitant]
     Active Substance: ALPRAZOLAM
     Indication: ANXIETY
     Dosage: UNK
     Route: 065
  3. CYCLOBENZAPRINE. [Concomitant]
     Active Substance: CYCLOBENZAPRINE
     Indication: MUSCLE RELAXANT THERAPY
     Dosage: UNK
     Route: 065
  4. OXYCODONE HYDROCHLORIDE. [Suspect]
     Active Substance: OXYCODONE HYDROCHLORIDE
     Indication: BACK PAIN
     Dosage: 30 MG, 5 TIMES A DAY
  5. CLONAZEPAM. [Concomitant]
     Active Substance: CLONAZEPAM
     Indication: PRODUCT USED FOR UNKNOWN INDICATION
     Dosage: UNK
     Route: 065
  6. HYDROMORPHONE HYDROCHLORIDE (2MG AND 4MG) [Suspect]
     Active Substance: HYDROMORPHONE HYDROCHLORIDE
     Indication: BACK PAIN
     Dosage: 2 MG, QD
     Route: 065
  7. ALPRAZOLAM. [Concomitant]
     Active Substance: ALPRAZOLAM
     Indication: PANIC DISORDER

REACTIONS (3)
  - Sepsis [Recovered/Resolved]
  - Urinary tract infection [Recovered/Resolved]
  - Hallucination, visual [Recovered/Resolved]
